FAERS Safety Report 4416907-5 (Version None)
Quarter: 2004Q3

REPORT INFORMATION
  Report Type: 
  Country: None (occurrence: None)
  Receive Date: 20040804
  Receipt Date: 20040804
  Transmission Date: 20050211
  Serious: Yes (Other)
  Sender: FDA-Public Use
  Company Number: None

PATIENT
  Age: 43 Year
  Sex: Male
  Weight: 52.6173 kg

DRUGS (6)
  1. IRINOTECAN 100 MG /5 ML PHARMACIA AND UPJOHN [Suspect]
     Indication: PANCREATIC CARCINOMA METASTATIC
     Dosage: 160 MG/M2 EVERY 21 D IV
     Route: 042
     Dates: start: 20040708, end: 20040708
  2. DOCETAXEL 80 MG/2ML AVENTIS [Suspect]
     Indication: PANCREATIC CARCINOMA METASTATIC
     Dosage: 65 MG/M*2 EVERY 21 D IV
     Route: 042
     Dates: start: 20040708, end: 20040708
  3. MORPHINE [Concomitant]
  4. ATIVAN [Concomitant]
  5. COMPAZINE [Concomitant]
  6. GLYCERIN SUPPOSITORIES [Concomitant]

REACTIONS (3)
  - DRUG TOXICITY [None]
  - FATIGUE [None]
  - HAEMOGLOBIN DECREASED [None]
